FAERS Safety Report 20853579 (Version 1)
Quarter: 2022Q2

REPORT INFORMATION
  Report Type: Spontaneous
  Country: US (occurrence: None)
  Receive Date: 20220519
  Receipt Date: 20220519
  Transmission Date: 20220720
  Serious: No
  Sender: FDA-Public Use
  Company Number: None

PATIENT
  Age: 63 Year
  Sex: Female

DRUGS (1)
  1. HUMIRA [Suspect]
     Active Substance: ADALIMUMAB
     Indication: Rheumatoid arthritis
     Dosage: 40MG  OTHER SUBCUTANEOUS?
     Route: 058
     Dates: start: 201301

REACTIONS (2)
  - Colitis [None]
  - Hydronephrosis [None]

NARRATIVE: CASE EVENT DATE: 20220516
